FAERS Safety Report 16383738 (Version 1)
Quarter: 2019Q2

REPORT INFORMATION
  Report Type: Spontaneous
  Country: US (occurrence: US)
  Receive Date: 20190603
  Receipt Date: 20190603
  Transmission Date: 20190711
  Serious: No
  Sender: FDA-Public Use
  Company Number: US-SA-2019SA150822

PATIENT
  Age: 14 Year
  Sex: Male

DRUGS (7)
  1. DIASTAT [DIAZEPAM] [Concomitant]
  2. CLARITINE [Concomitant]
     Active Substance: LORATADINE
  3. TYLENOL [Concomitant]
     Active Substance: ACETAMINOPHEN
  4. DUPIXENT [Suspect]
     Active Substance: DUPILUMAB
     Indication: DERMATITIS CONTACT
     Dosage: 300 MG, QOW
     Dates: start: 20190401
  5. MELATONIN [Concomitant]
     Active Substance: MELATONIN
  6. EPINEPHRINE. [Concomitant]
     Active Substance: EPINEPHRINE
  7. DEPAKOTE [Concomitant]
     Active Substance: DIVALPROEX SODIUM

REACTIONS (1)
  - Swelling [Recovered/Resolved]

NARRATIVE: CASE EVENT DATE: 20190524
